FAERS Safety Report 5908255-9 (Version None)
Quarter: 2008Q4

REPORT INFORMATION
  Report Type: 
  Country: None (occurrence: None)
  Receive Date: 20081006
  Receipt Date: 20080903
  Transmission Date: 20090506
  Serious: No
  Sender: FDA-Public Use
  Company Number: US-BAYER-200827197NA

PATIENT
  Age: 49 Year
  Sex: Male
  Weight: 118 kg

DRUGS (5)
  1. LEVITRA [Suspect]
     Indication: ERECTILE DYSFUNCTION
     Dosage: TOTAL DAILY DOSE: 20 MG  UNIT DOSE: 20 MG
     Route: 048
     Dates: start: 20080701
  2. DILTIAZEM HCL [Concomitant]
  3. ENALAPRIL MALEATE [Concomitant]
  4. GEMFIBROZIL [Concomitant]
  5. HYDROCHLOROTHIAZIDE [Concomitant]

REACTIONS (1)
  - ERECTILE DYSFUNCTION [None]
